FAERS Safety Report 21295508 (Version 3)
Quarter: 2022Q3

REPORT INFORMATION
  Report Type: Other
  Country: JP (occurrence: JP)
  Receive Date: 20220905
  Receipt Date: 20220927
  Transmission Date: 20221027
  Serious: Yes (Death, Hospitalization)
  Sender: FDA-Public Use
  Company Number: JP-CHUGAI-2022008599

PATIENT
  Age: 66 Year
  Sex: Male
  Weight: 97.5 kg

DRUGS (17)
  1. ATEZOLIZUMAB [Suspect]
     Active Substance: ATEZOLIZUMAB
     Indication: Hepatocellular carcinoma
     Route: 041
     Dates: start: 20220121, end: 20220809
  2. BEVACIZUMAB [Suspect]
     Active Substance: BEVACIZUMAB
     Indication: Hepatocellular carcinoma
     Route: 041
     Dates: start: 20220121, end: 20220809
  3. CANDESARTAN CILEXETIL [Concomitant]
     Active Substance: CANDESARTAN CILEXETIL
     Indication: Hypertension
     Dosage: 4 MILLIGRAM, QD
     Route: 048
     Dates: end: 20220822
  4. FEBUXOSTAT [Concomitant]
     Active Substance: FEBUXOSTAT
     Indication: Hyperuricaemia
     Dosage: 10 MILLIGRAM, QD
     Route: 048
  5. URSODIOL [Concomitant]
     Active Substance: URSODIOL
     Indication: Prophylaxis
     Dosage: 200 MILLIGRAM, TID
     Route: 048
  6. LACTULOSE [Concomitant]
     Active Substance: LACTULOSE
     Indication: Faecal management
     Dosage: 20 MILLIGRAM, TID
     Route: 048
  7. RIFAXIMIN [Concomitant]
     Active Substance: RIFAXIMIN
     Indication: Prophylaxis
     Dosage: 400 MILLIGRAM, TID
     Route: 048
  8. NEXIUM [Concomitant]
     Active Substance: ESOMEPRAZOLE MAGNESIUM
     Indication: Prophylaxis
     Dosage: 10 MILLIGRAM, BID
     Route: 048
  9. AMINO ACIDS, SOURCE UNSPECIFIED [Concomitant]
     Active Substance: AMINO ACIDS, SOURCE UNSPECIFIED
     Indication: Prophylaxis
     Dosage: UNK
     Route: 048
  10. LINAGLIPTIN [Concomitant]
     Active Substance: LINAGLIPTIN
     Indication: Diabetes mellitus
     Dosage: 5 MILLIGRAM, QD
     Route: 048
     Dates: end: 20220819
  11. LINAGLIPTIN [Concomitant]
     Active Substance: LINAGLIPTIN
     Dosage: 5 MILLIGRAM, QD
     Route: 048
     Dates: start: 20220823
  12. REPAGLINIDE [Concomitant]
     Active Substance: REPAGLINIDE
     Indication: Diabetes mellitus
     Dosage: 0.25 MILLIGRAM, TID
     Route: 048
     Dates: end: 20220819
  13. REPAGLINIDE [Concomitant]
     Active Substance: REPAGLINIDE
     Dosage: 0.25 MILLIGRAM, TID
     Route: 048
     Dates: start: 20220823
  14. LUSEOGLIFLOZIN [Concomitant]
     Active Substance: LUSEOGLIFLOZIN
     Indication: Diabetes mellitus
     Dosage: 5 MILLIGRAM, QD
     Route: 048
     Dates: end: 20220819
  15. METHYLCOBALAMIN [Concomitant]
     Active Substance: METHYLCOBALAMIN
     Indication: Diabetic neuropathy
     Dosage: 500 MILLIGRAM, TID
     Route: 048
     Dates: end: 20220819
  16. TRULICITY [Concomitant]
     Active Substance: DULAGLUTIDE
     Indication: Diabetes mellitus
     Dosage: 0.75 MILLIGRAM, ONCE/WEEK
     Route: 058
     Dates: start: 202207, end: 20220817
  17. AMITIZA [Concomitant]
     Active Substance: LUBIPROSTONE
     Indication: Faecal management
     Dosage: 24 MILLIGRAM, BID
     Route: 048

REACTIONS (6)
  - Hepatic failure [Fatal]
  - Skin hyperpigmentation [Recovered/Resolved]
  - Dysphonia [Recovered/Resolved]
  - Blood bilirubin increased [Recovered/Resolved]
  - Renal failure [Fatal]
  - Urinary occult blood [Unknown]

NARRATIVE: CASE EVENT DATE: 20220211
